FAERS Safety Report 4996950-8 (Version None)
Quarter: 2006Q2

REPORT INFORMATION
  Report Type: 
  Country: None (occurrence: None)
  Receive Date: 20060505
  Receipt Date: 20060418
  Transmission Date: 20061013
  Serious: Yes (Hospitalization, Other)
  Sender: FDA-Public Use
  Company Number: US-2006-005234

PATIENT
  Age: 34 Year
  Sex: Male
  Weight: 72 kg

DRUGS (8)
  1. CAMPATH [Suspect]
     Indication: BONE MARROW CONDITIONING REGIMEN
     Dosage: 50 MG, 1X/DAY, D-7 TO D-3, INTRAVENOUS
     Route: 042
     Dates: start: 20040727, end: 20040731
  2. FLUDARA [Suspect]
     Indication: BONE MARROW CONDITIONING REGIMEN
     Dosage: 25 MG/KG, 1X/DAY, D-5 TO D, INTRAVENOUS
     Route: 042
     Dates: start: 20040729, end: 20040802
  3. LEUKINE [Suspect]
     Indication: COLONY STIMULATING FACTOR THERAPY
     Dosage: 250 MCG DAILY, STARTING D+3, SUBCUTANEOUS
     Route: 058
     Dates: start: 20040806
  4. CYCLOPHOSPHAMIDE [Suspect]
     Indication: BONE MARROW CONDITIONING REGIMEN
     Dosage: 45 MG/KG, 1X/DAY D-4 AND D-3, INTRAVENOUS
     Route: 042
     Dates: start: 20040730, end: 20040731
  5. MESNA [Suspect]
     Indication: BONE MARROW CONDITIONING REGIMEN
     Dosage: TOTAL DAILY DOSE OF 48 MG/KG, INTRAVENOUS
     Route: 042
     Dates: start: 20040730, end: 20040731
  6. ACYCLOVIR [Concomitant]
  7. URSODIOL (URSODEOXYCHOLIC ACID) [Concomitant]
  8. CYCLOSPORINE [Concomitant]

REACTIONS (20)
  - CENTRAL LINE INFECTION [None]
  - CENTRAL NERVOUS SYSTEM LESION [None]
  - DEVICE INEFFECTIVE [None]
  - EPSTEIN-BARR VIRUS TEST POSITIVE [None]
  - GASTROINTESTINAL HAEMORRHAGE [None]
  - GASTROOESOPHAGEAL REFLUX DISEASE [None]
  - GRAFT VERSUS HOST DISEASE IN LIVER [None]
  - HERPES SIMPLEX [None]
  - HYPONATRAEMIA [None]
  - LARYNGITIS [None]
  - LYMPHOPROLIFERATIVE DISORDER [None]
  - ORAL CANDIDIASIS [None]
  - ORAL MUCOSAL EXFOLIATION [None]
  - RESPIRATORY SYNCYTIAL VIRUS INFECTION [None]
  - SINUS HEADACHE [None]
  - STAPHYLOCOCCAL INFECTION [None]
  - THERAPY NON-RESPONDER [None]
  - TOXOPLASMOSIS [None]
  - VASCULITIS [None]
  - VIRAL VASCULITIS [None]
